FAERS Safety Report 10900017 (Version 1)
Quarter: 2015Q1

REPORT INFORMATION
  Report Type: Spontaneous
  Country: GB (occurrence: GB)
  Receive Date: 20150310
  Receipt Date: 20150310
  Transmission Date: 20150721
  Serious: Yes (Hospitalization)
  Sender: FDA-Public Use
  Company Number: GB-PFIZER INC-2014321683

PATIENT
  Age: 53 Year
  Sex: Female

DRUGS (6)
  1. MEBEVERINE [Concomitant]
     Active Substance: MEBEVERINE
     Dosage: OVER 6 YEARS
  2. SALAZOPYRIN [Suspect]
     Active Substance: SULFASALAZINE
     Indication: JUVENILE IDIOPATHIC ARTHRITIS
     Dosage: 1 G, 2X/DAY
     Dates: start: 201311, end: 20140814
  3. SALAZOPYRIN [Suspect]
     Active Substance: SULFASALAZINE
     Dosage: UNK
     Dates: start: 20141023, end: 20141118
  4. CO-DYDRAMOL [Concomitant]
     Active Substance: ACETAMINOPHEN\DIHYDROCODEINE
     Dosage: OVER 6 YEARS
  5. OMEPRAZOLE. [Concomitant]
     Active Substance: OMEPRAZOLE
     Dosage: OVER 6 YEARS
  6. CETIRIZINE [Concomitant]
     Active Substance: CETIRIZINE HYDROCHLORIDE
     Dosage: OVER 6 YEARS

REACTIONS (8)
  - Palpitations [Unknown]
  - Pain in extremity [Unknown]
  - Asthma [Not Recovered/Not Resolved]
  - Dyspnoea [Recovered/Resolved with Sequelae]
  - Heart rate increased [Unknown]
  - Cough [Recovered/Resolved]
  - Skin discolouration [Recovered/Resolved]
  - Contusion [Recovered/Resolved]

NARRATIVE: CASE EVENT DATE: 201405
